FAERS Safety Report 8298036-6 (Version None)
Quarter: 2012Q2

REPORT INFORMATION
  Report Type: 
  Country: None (occurrence: None)
  Receive Date: 20120419
  Receipt Date: 20120417
  Transmission Date: 20120825
  Serious: Yes (Death, Hospitalization)
  Sender: FDA-Public Use
  Company Number: JP-B.I. PHARMACEUTICALS,INC./RIDGEFIELD-2012-BP-03978NB

PATIENT
  Sex: Female
  Weight: 38.5 kg

DRUGS (6)
  1. DIGOXIN [Concomitant]
     Indication: ARRHYTHMIA
     Dosage: 0.125 MG
     Route: 048
     Dates: start: 20120121, end: 20120221
  2. PRADAXA [Suspect]
     Indication: ATRIAL FIBRILLATION
     Dosage: 150 MG
     Route: 048
     Dates: start: 20120218
  3. VERAPAMIL HCL [Concomitant]
     Indication: ARRHYTHMIA
     Dosage: 120 MG
     Route: 048
     Dates: start: 20120121, end: 20120221
  4. EPLERENONE [Concomitant]
     Indication: CARDIAC FAILURE CHRONIC
     Dosage: 25 MG
     Route: 048
     Dates: start: 20120121, end: 20120221
  5. ASPIRIN [Suspect]
     Indication: ANGINA PECTORIS
     Dosage: 100 MG
     Route: 048
     Dates: start: 20120121, end: 20120221
  6. LANSOPRAZOLE [Concomitant]
     Indication: PROPHYLAXIS
     Dosage: 15 MG
     Route: 048
     Dates: start: 20120121, end: 20120221

REACTIONS (2)
  - CEREBRAL HAEMORRHAGE [None]
  - SHOCK HAEMORRHAGIC [None]
